FAERS Safety Report 4367403-5 (Version None)
Quarter: 2004Q2

REPORT INFORMATION
  Report Type: 
  Country: None (occurrence: None)
  Receive Date: 20040528
  Receipt Date: 20040528
  Transmission Date: 20050107
  Serious: Yes (Hospitalization)
  Sender: FDA-Public Use
  Company Number: None

PATIENT
  Sex: Female

DRUGS (4)
  1. TOPIRMATE [Suspect]
     Indication: EPILEPSY
     Dosage: 100 MG TWICE DAILY ORAL
     Route: 048
  2. LEVETIRACETAM [Concomitant]
  3. DEPAKOTE [Concomitant]
  4. RISPERIDONE [Concomitant]

REACTIONS (1)
  - ACIDOSIS HYPERCHLORAEMIC [None]
